FAERS Safety Report 16154017 (Version 1)
Quarter: 2019Q2

REPORT INFORMATION
  Report Type: Spontaneous
  Country: CA (occurrence: CA)
  Receive Date: 20190403
  Receipt Date: 20190403
  Transmission Date: 20190711
  Serious: Yes (Other)
  Sender: FDA-Public Use
  Company Number: CA-TAKEDA-2019TUS019116

PATIENT
  Age: 70 Year
  Sex: Male

DRUGS (7)
  1. IXAZOMIB [Suspect]
     Active Substance: IXAZOMIB
     Indication: AMYLOIDOSIS
  2. DEXAMETHASONE. [Suspect]
     Active Substance: DEXAMETHASONE
     Indication: MONOCLONAL GAMMOPATHY
     Dosage: 20 MILLIGRAM
     Route: 065
  3. DEXAMETHASONE. [Suspect]
     Active Substance: DEXAMETHASONE
     Indication: AMYLOIDOSIS
  4. IXAZOMIB [Suspect]
     Active Substance: IXAZOMIB
     Indication: MONOCLONAL GAMMOPATHY
     Dosage: 3 MILLIGRAM
     Route: 048
  5. PROCYTOX [Suspect]
     Active Substance: CYCLOPHOSPHAMIDE
     Indication: AMYLOIDOSIS
  6. ONDANSETRON [Concomitant]
     Active Substance: ONDANSETRON
     Indication: PRODUCT USED FOR UNKNOWN INDICATION
     Dosage: 16.0 MILLIGRAM
     Route: 065
  7. PROCYTOX [Suspect]
     Active Substance: CYCLOPHOSPHAMIDE
     Indication: MONOCLONAL GAMMOPATHY
     Dosage: 500 MILLIGRAM, 1/WEEK
     Route: 065

REACTIONS (4)
  - Blood creatinine increased [Unknown]
  - Therapeutic product effect incomplete [Unknown]
  - Haemoglobin decreased [Unknown]
  - Light chain analysis abnormal [Unknown]
